FAERS Safety Report 13074059 (Version 1)
Quarter: 2016Q4

REPORT INFORMATION
  Report Type: Spontaneous
  Country: CA (occurrence: CA)
  Receive Date: 20161229
  Receipt Date: 20161229
  Transmission Date: 20170207
  Serious: Yes (Death)
  Sender: FDA-Public Use
  Company Number: CA-TEVA-722858ACC

PATIENT
  Age: 52 Year
  Sex: Female

DRUGS (11)
  1. FUROSEMIDE. [Concomitant]
     Active Substance: FUROSEMIDE
  2. AMITRIPTYLINE [Suspect]
     Active Substance: AMITRIPTYLINE
     Indication: DEPRESSION
     Dosage: 100 MILLIGRAM DAILY;
     Route: 048
  3. OXYBUTYNIN [Concomitant]
     Active Substance: OXYBUTYNIN
  4. METHADONE [Concomitant]
     Active Substance: METHADONE HYDROCHLORIDE
  5. PANTOPRAZOLE [Concomitant]
     Active Substance: PANTOPRAZOLE SODIUM
  6. TOPIRAMATE. [Concomitant]
     Active Substance: TOPIRAMATE
  7. METOCLOPRAMIDE. [Concomitant]
     Active Substance: METOCLOPRAMIDE
  8. RABEPRAZOLE [Concomitant]
     Active Substance: RABEPRAZOLE
  9. ZOPICLONE [Concomitant]
     Active Substance: ZOPICLONE
  10. BACLOFEN. [Suspect]
     Active Substance: BACLOFEN
     Indication: MULTIPLE SCLEROSIS
     Dosage: 80 MILLIGRAM DAILY;
     Route: 065
  11. BUPROPION. [Concomitant]
     Active Substance: BUPROPION

REACTIONS (3)
  - Toxicity to various agents [Fatal]
  - Lethargy [Fatal]
  - Somnolence [Fatal]
